FAERS Safety Report 13372444 (Version 2)
Quarter: 2017Q1

REPORT INFORMATION
  Report Type: Spontaneous
  Country: US (occurrence: US)
  Receive Date: 20170327
  Receipt Date: 20170330
  Transmission Date: 20170429
  Serious: Yes (Hospitalization, Other)
  Sender: FDA-Public Use
  Company Number: US-ROCHE-1906075

PATIENT
  Sex: Male
  Weight: 106.69 kg

DRUGS (1)
  1. CELLCEPT [Suspect]
     Active Substance: MYCOPHENOLATE MOFETIL\MYCOPHENOLATE MOFETIL HYDROCHLORIDE
     Indication: PEMPHIGOID
     Dosage: YES
     Route: 048
     Dates: start: 2014

REACTIONS (24)
  - Cognitive disorder [Unknown]
  - Gait disturbance [Unknown]
  - Toxic shock syndrome [Unknown]
  - Anxiety [Unknown]
  - Depressed level of consciousness [Unknown]
  - Urinary tract infection [Not Recovered/Not Resolved]
  - Impaired healing [Not Recovered/Not Resolved]
  - Heart rate increased [Unknown]
  - Sepsis [Unknown]
  - Infection [Unknown]
  - Urinary tract infection [Unknown]
  - Tremor [Unknown]
  - Hypophagia [Unknown]
  - Bedridden [Unknown]
  - Drug ineffective [Unknown]
  - Malaise [Unknown]
  - Pyrexia [Unknown]
  - Skin disorder [Unknown]
  - Impaired healing [Unknown]
  - Immunodeficiency [Unknown]
  - Abdominal discomfort [Unknown]
  - Off label use [Unknown]
  - Pulmonary embolism [Unknown]
  - Ear disorder [Unknown]
